FAERS Safety Report 9044613 (Version 8)
Quarter: 2014Q1

REPORT INFORMATION
  Report Type: Report from Study
  Country: BR (occurrence: BR)
  Receive Date: 20130130
  Receipt Date: 20140205
  Transmission Date: 20141002
  Serious: Yes (Hospitalization, Other)
  Sender: FDA-Public Use
  Company Number: BR-ROCHE-1091167

PATIENT
  Sex: Female
  Weight: 100 kg

DRUGS (6)
  1. ACTEMRA [Suspect]
     Indication: RHEUMATOID ARTHRITIS
     Route: 042
     Dates: start: 20091110
  2. ACTEMRA [Suspect]
     Indication: OSTEOARTHRITIS
     Route: 065
     Dates: start: 201001, end: 201101
  3. ACTEMRA [Suspect]
     Route: 065
     Dates: start: 201103
  4. ACTEMRA [Suspect]
     Route: 065
     Dates: start: 201105, end: 201208
  5. MABTHERA [Suspect]
     Indication: RHEUMATOID ARTHRITIS
     Route: 065
  6. LIPITOR [Concomitant]

REACTIONS (18)
  - Uterine cancer [Not Recovered/Not Resolved]
  - Abdominal mass [Recovered/Resolved]
  - Diverticulitis [Unknown]
  - Hernia [Recovered/Resolved]
  - Dengue fever [Recovered/Resolved with Sequelae]
  - Blood cholesterol increased [Recovering/Resolving]
  - Blood cholesterol abnormal [Recovered/Resolved]
  - Hypertriglyceridaemia [Recovered/Resolved]
  - Hypertension [Recovered/Resolved]
  - Arthralgia [Unknown]
  - Skin discolouration [Recovered/Resolved]
  - Varicose vein [Recovered/Resolved]
  - Diarrhoea [Recovered/Resolved]
  - Gastrointestinal pain [Recovered/Resolved]
  - Hypertension [Unknown]
  - Fall [Unknown]
  - Diabetes mellitus [Recovering/Resolving]
  - Blood pressure increased [Recovering/Resolving]
